FAERS Safety Report 4307386-7 (Version None)
Quarter: 2004Q1

REPORT INFORMATION
  Report Type: 
  Country: None (occurrence: None)
  Receive Date: 20040226
  Receipt Date: 20040213
  Transmission Date: 20041129
  Serious: Yes (Hospitalization, Other)
  Sender: FDA-Public Use
  Company Number: 2004009821

PATIENT
  Sex: Male
  Weight: 76.7 kg

DRUGS (16)
  1. NEURONTIN [Suspect]
     Indication: ILL-DEFINED DISORDER
     Dosage: 1200 MG (TID), ORAL
     Route: 048
  2. LORAZEPAM [Concomitant]
  3. SPIRONOLACTONE [Concomitant]
  4. PREDNISONE [Concomitant]
  5. OSELTAMIVIR (OSELTAMIVIR) [Concomitant]
  6. FOLIC ACID [Concomitant]
  7. LANSOPRAZOLE [Concomitant]
  8. LACTULOSE [Concomitant]
  9. LEVOFLOXACIN [Concomitant]
  10. PROPRANOLOL HCL [Concomitant]
  11. MAGNESIUM (MAGNESIUM) [Concomitant]
  12. NEUTRA-PHOS (SODIUM PHOSPHATE DIBASIC, SODIUM PHOSPHATE MONOBASIC (ANH [Concomitant]
  13. POTASSIUM CHLORIDE [Concomitant]
  14. BUMETANIDE [Concomitant]
  15. OCTREOTIDE ACETATE (OCTREOTIDE ACETATE) [Concomitant]
  16. PHYTONADIONE [Concomitant]

REACTIONS (1)
  - STEVENS-JOHNSON SYNDROME [None]
